FAERS Safety Report 7621120-4 (Version None)
Quarter: 2011Q3

REPORT INFORMATION
  Report Type: 
  Country: None (occurrence: None)
  Receive Date: 20110719
  Receipt Date: 20110704
  Transmission Date: 20111222
  Serious: Yes (Hospitalization, Other)
  Sender: FDA-Public Use
  Company Number: PHHY2010JP59878

PATIENT
  Sex: Male
  Weight: 70 kg

DRUGS (16)
  1. AFINITOR [Suspect]
     Dosage: 10 MG, DAILY
     Dates: start: 20101009, end: 20110224
  2. AFINITOR [Suspect]
     Dosage: 5 MG, QD
     Route: 048
     Dates: start: 20110401, end: 20110405
  3. SUNITINIB MALATE [Concomitant]
     Indication: METASTATIC RENAL CELL CARCINOMA
     Dosage: 50 MG, UNK
     Route: 048
     Dates: start: 20100422, end: 20100510
  4. AFINITOR [Suspect]
     Dosage: 5 MG, QD
     Route: 048
     Dates: start: 20110414, end: 20110422
  5. LASIX [Concomitant]
     Indication: METASTATIC RENAL CELL CARCINOMA
     Dosage: 40 MG, UNK
     Route: 048
     Dates: start: 20100416
  6. UREPEARL [Concomitant]
     Indication: PROPHYLAXIS
     Route: 061
  7. MYSER [Concomitant]
     Indication: PROPHYLAXIS
     Route: 061
  8. AFINITOR [Suspect]
     Indication: METASTATIC RENAL CELL CARCINOMA
     Dosage: 10 MG, UNK
     Route: 048
     Dates: start: 20100528
  9. AFINITOR [Suspect]
     Dosage: 10 MG, QD
     Route: 048
     Dates: start: 20110323, end: 20110331
  10. AFINITOR [Suspect]
     Dosage: 5 MG, QD
     Route: 048
     Dates: start: 20110520
  11. NAPROXEN [Concomitant]
     Indication: METASTATIC RENAL CELL CARCINOMA
     Dosage: 300 MG, UNK
     Route: 048
     Dates: start: 20100416
  12. AFINITOR [Suspect]
     Dosage: 10 MG, QD
     Route: 048
     Dates: start: 20110423, end: 20110506
  13. LASIX [Concomitant]
     Dosage: 20 MG, UNK
     Route: 048
  14. LANSOPRAZOLE [Concomitant]
     Indication: PROPHYLAXIS
     Dosage: 15 MG, UNK
     Route: 048
     Dates: start: 20100416
  15. ALDACTONE [Concomitant]
     Indication: METASTATIC RENAL CELL CARCINOMA
     Dosage: 25 MG, UNK
     Route: 048
     Dates: start: 20100416
  16. FERROUS SULFATE TAB [Concomitant]
     Dosage: 105 MG, UNK
     Route: 048
     Dates: start: 20100801

REACTIONS (10)
  - BLOOD ALKALINE PHOSPHATASE INCREASED [None]
  - GLYCOSYLATED HAEMOGLOBIN INCREASED [None]
  - HYPOALBUMINAEMIA [None]
  - PAIN [None]
  - DISSEMINATED INTRAVASCULAR COAGULATION [None]
  - GASTRITIS [None]
  - GASTRIC HAEMORRHAGE [None]
  - ANAEMIA [None]
  - METASTASES TO BONE [None]
  - HYPERGLYCAEMIA [None]
